FAERS Safety Report 17153855 (Version 4)
Quarter: 2019Q4

REPORT INFORMATION
  Report Type: Spontaneous
  Country: PE (occurrence: PE)
  Receive Date: 20191213
  Receipt Date: 20191226
  Transmission Date: 20200122
  Serious: Yes (Hospitalization)
  Sender: FDA-Public Use
  Company Number: PE-B.I. PHARMACEUTICALS,INC./RIDGEFIELD-2019-BI-119466

PATIENT
  Age: 83 Year
  Sex: Male
  Weight: 68 kg

DRUGS (6)
  1. LOSARTAN. [Concomitant]
     Active Substance: LOSARTAN
     Indication: HYPERTENSION
     Dosage: ACTION TAKEN: DOSE REDUCED
     Route: 048
     Dates: end: 201908
  2. LOSARTAN. [Concomitant]
     Active Substance: LOSARTAN
     Dosage: ACTION TAKEN: DRUG DISCONTINUED
     Route: 048
     Dates: start: 201908, end: 201912
  3. PRADAXA [Suspect]
     Active Substance: DABIGATRAN ETEXILATE MESYLATE
     Dosage: RESTARTED
     Route: 048
     Dates: start: 20191205, end: 20191209
  4. PRADAXA [Suspect]
     Active Substance: DABIGATRAN ETEXILATE MESYLATE
     Indication: ATRIAL FIBRILLATION
     Route: 048
     Dates: start: 201906, end: 201912
  5. PRADAXA [Suspect]
     Active Substance: DABIGATRAN ETEXILATE MESYLATE
     Route: 048
     Dates: start: 20191211
  6. DIGOXIN. [Concomitant]
     Active Substance: DIGOXIN
     Indication: ATRIAL FIBRILLATION
     Route: 048

REACTIONS (3)
  - Procedural haemorrhage [Recovered/Resolved]
  - Tooth extraction [Unknown]
  - Ecchymosis [Unknown]

NARRATIVE: CASE EVENT DATE: 20191203
